FAERS Safety Report 7749996 (Version 4)
Quarter: 2013Q1

REPORT INFORMATION
  Report Type: Spontaneous
  Country: US (occurrence: US)
  Receive Date: 20110106
  Receipt Date: 20130325
  Transmission Date: 20140127
  Serious: Yes (Hospitalization, Other)
  Sender: FDA-Public Use
  Company Number: US-BAYER-2011-001154

PATIENT
  Age: 43 Year
  Sex: Female
  Weight: 58.96 kg

DRUGS (11)
  1. YASMIN [Suspect]
     Indication: CONTRACEPTION
     Dosage: UNK
     Dates: start: 2005, end: 200911
  2. YASMIN [Suspect]
     Indication: MENSTRUATION IRREGULAR
     Dosage: UNK
     Dates: start: 200612, end: 200807
  3. YASMIN [Suspect]
     Indication: PREMENSTRUAL SYNDROME
  4. OCELLA [Suspect]
     Indication: CONTRACEPTION
     Dosage: UNK
     Dates: start: 2007, end: 200911
  5. OCELLA [Suspect]
     Indication: MENSTRUATION IRREGULAR
     Dosage: UNK
     Dates: start: 200807, end: 200910
  6. OCELLA [Suspect]
     Indication: PREMENSTRUAL SYNDROME
  7. Z-PAK [Concomitant]
     Indication: SINUSITIS
     Dosage: UNK
  8. MOTRIN [Concomitant]
  9. MULTIVITAMIN [Concomitant]
     Dosage: UNK UNK, QD
     Dates: start: 1990
  10. ZYRTEC [Concomitant]
     Route: 048
  11. YAZ [Suspect]

REACTIONS (6)
  - Cholelithiasis [None]
  - Pancreatitis [None]
  - Cholecystitis chronic [None]
  - Nausea [None]
  - Abdominal pain [None]
  - Gallbladder disorder [None]
